FAERS Safety Report 23464304 (Version 3)
Quarter: 2024Q1

REPORT INFORMATION
  Report Type: Report from Study
  Country: JP (occurrence: JP)
  Receive Date: 20240201
  Receipt Date: 20240322
  Transmission Date: 20240409
  Serious: Yes (Other)
  Sender: FDA-Public Use
  Company Number: JP-GSK-JP2022JPN123352

PATIENT

DRUGS (14)
  1. BELIMUMAB [Suspect]
     Active Substance: BELIMUMAB
     Indication: Systemic lupus erythematosus
     Dosage: 200 MG, WE
     Route: 058
     Dates: start: 20220219, end: 20220514
  2. BELIMUMAB [Suspect]
     Active Substance: BELIMUMAB
     Dosage: 200 MG
     Route: 058
     Dates: start: 20220601, end: 20220727
  3. BELIMUMAB [Suspect]
     Active Substance: BELIMUMAB
     Dosage: 200 MG
     Route: 058
     Dates: start: 20220810, end: 20230317
  4. PREDNISOLONE [Suspect]
     Active Substance: PREDNISOLONE
     Indication: Systemic lupus erythematosus
     Dosage: 7 MG, QD
     Route: 048
     Dates: start: 20220219, end: 20220318
  5. PREDNISOLONE [Suspect]
     Active Substance: PREDNISOLONE
     Dosage: 6 MG, QD
     Route: 048
     Dates: start: 20220319, end: 20220520
  6. PREDNISOLONE [Suspect]
     Active Substance: PREDNISOLONE
     Dosage: 5 MG, QD
     Route: 048
     Dates: start: 20220521, end: 20220819
  7. PREDNISOLONE [Suspect]
     Active Substance: PREDNISOLONE
     Dosage: 4 MG, QD
     Route: 048
     Dates: start: 20220820
  8. TACROLIMUS [Concomitant]
     Active Substance: TACROLIMUS
     Indication: Systemic lupus erythematosus
     Dosage: UNK
  9. LANSOPRAZOLE [Concomitant]
     Active Substance: LANSOPRAZOLE
     Indication: Gastritis prophylaxis
     Dosage: UNK
  10. ALFACALCIDOL [Concomitant]
     Active Substance: ALFACALCIDOL
     Indication: Osteoporosis prophylaxis
     Dosage: UNK
  11. ACETAMINOPHEN [Concomitant]
     Active Substance: ACETAMINOPHEN
     Dosage: UNK
  12. TRANEXAMIC ACID [Concomitant]
     Active Substance: TRANEXAMIC ACID
     Dosage: UNK
  13. CARBOCYSTEINE [Concomitant]
     Active Substance: CARBOCYSTEINE
     Dosage: UNK
  14. DEXTROMETHORPHAN HYDROBROMIDE [Concomitant]
     Active Substance: DEXTROMETHORPHAN HYDROBROMIDE
     Dosage: UNK

REACTIONS (8)
  - Depressed mood [Recovering/Resolving]
  - Enterocolitis [Recovering/Resolving]
  - Insomnia [Recovering/Resolving]
  - Iron deficiency anaemia [Recovering/Resolving]
  - Alopecia [Recovering/Resolving]
  - Exposure during pregnancy [Unknown]
  - Abortion induced [Unknown]
  - Product use issue [Unknown]

NARRATIVE: CASE EVENT DATE: 20220520
